FAERS Safety Report 15652873 (Version 2)
Quarter: 2019Q2

REPORT INFORMATION
  Report Type: Spontaneous
  Country: US (occurrence: US)
  Receive Date: 20181123
  Receipt Date: 20190417
  Transmission Date: 20190711
  Serious: Yes (Other)
  Sender: FDA-Public Use
  Company Number: US-NOVOPROD-597489

PATIENT
  Age: 69 Year
  Sex: Female

DRUGS (1)
  1. NOVOLOG [Suspect]
     Active Substance: INSULIN ASPART
     Indication: TYPE 2 DIABETES MELLITUS
     Dosage: 66 IU, QD (38 UNITS AM + 28 UNITS PM)
     Route: 058
     Dates: start: 201604

REACTIONS (3)
  - Weight increased [Not Recovered/Not Resolved]
  - Limb operation [Unknown]
  - Increased appetite [Not Recovered/Not Resolved]

NARRATIVE: CASE EVENT DATE: 201604
